FAERS Safety Report 12735708 (Version 1)
Quarter: 2016Q3

REPORT INFORMATION
  Report Type: Spontaneous
  Country: GB (occurrence: GB)
  Receive Date: 20160912
  Receipt Date: 20160912
  Transmission Date: 20161109
  Serious: Yes (Other)
  Sender: FDA-Public Use
  Company Number: GB-GLAXOSMITHKLINE-GB2016128947

PATIENT
  Age: 4 Year
  Sex: Male
  Weight: 19 kg

DRUGS (15)
  1. FUSIDIC ACID [Concomitant]
     Active Substance: FUSIDIC ACID
     Dosage: 1 DF, UNK, APPLY GENTLY 2 OR 3 TIMES A DAY
     Dates: start: 20160731, end: 20160801
  2. SODIUM CHLORIDE. [Concomitant]
     Active Substance: SODIUM CHLORIDE
     Dosage: 2 DF, UNK
     Dates: start: 20160627
  3. TOPIRAMATE. [Concomitant]
     Active Substance: TOPIRAMATE
     Dosage: 5 ML, BID
     Dates: start: 20150916
  4. PREDNISOLONE. [Concomitant]
     Active Substance: PREDNISOLONE
     Dosage: 4 DF, QD
     Dates: start: 20160609, end: 20160611
  5. CHLORPHENAMINE [Concomitant]
     Active Substance: CHLORPHENIRAMINE MALEATE
     Dosage: 2 ML, BID
     Dates: start: 20150916
  6. BACLOFEN. [Concomitant]
     Active Substance: BACLOFEN
     Dosage: 25 ML, UNK
     Dates: start: 20151221
  7. MAXITROL [Concomitant]
     Active Substance: DEXAMETHASONE\NEOMYCIN SULFATE\POLYMYXIN B SULFATE
     Dosage: 1 DF, TID, AROUNG MIKI BUTTON
     Dates: start: 20160718, end: 20160723
  8. HYOSCINE HYDROBROMIDE [Suspect]
     Active Substance: SCOPOLAMINE
     Indication: PRODUCT USED FOR UNKNOWN INDICATION
     Dosage: UNK
     Route: 065
     Dates: start: 20160825
  9. AMOXICILLIN. [Concomitant]
     Active Substance: AMOXICILLIN
     Dosage: 5 ML, TID
     Dates: start: 20160615, end: 20160620
  10. RANITIDINE. [Concomitant]
     Active Substance: RANITIDINE
     Dosage: 3 ML, BID
     Dates: start: 20150916
  11. CLOBAZAM [Concomitant]
     Active Substance: CLOBAZAM
     Dosage: 5 ML, BID
     Dates: start: 20150916
  12. CO-AMOXICLAV [Concomitant]
     Active Substance: AMOXICILLIN\CLAVULANIC ACID
     Dosage: 5 ML, QD, AT NIGHT
     Dates: start: 20160127
  13. MACROGOL + POTASSIUM CHLORIDE + SODIUM CHLORIDE [Concomitant]
     Dosage: 2 UNK, UNK
     Route: 065
     Dates: start: 20160804
  14. MIDAZOLAM [Concomitant]
     Active Substance: MIDAZOLAM\MIDAZOLAM HYDROCHLORIDE
     Dosage: 0.5 ML, UNK
     Dates: start: 20150916
  15. MOVICOL [Concomitant]
     Active Substance: POLYETHYLENE GLYCOL 3350\POTASSIUM CHLORIDE\SODIUM BICARBONATE\SODIUM CHLORIDE
     Dosage: UNK, UP TO 2 SACHETS DAILY
     Dates: start: 20150916, end: 20160804

REACTIONS (1)
  - Complex partial seizures [Recovered/Resolved]

NARRATIVE: CASE EVENT DATE: 20160825
